FAERS Safety Report 16093522 (Version 2)
Quarter: 2019Q2

REPORT INFORMATION
  Report Type: Spontaneous
  Country: JP (occurrence: JP)
  Receive Date: 20190320
  Receipt Date: 20190514
  Transmission Date: 20190711
  Serious: Yes (Hospitalization)
  Sender: FDA-Public Use
  Company Number: JP-GLAXOSMITHKLINE-JP2019JPN022379

PATIENT
  Age: 63 Year
  Sex: Female
  Weight: 47 kg

DRUGS (5)
  1. BENLYSTA [Suspect]
     Active Substance: BELIMUMAB
     Dosage: 200 MG, WE
     Route: 058
     Dates: start: 20190219
  2. PLAQUENIL [Concomitant]
     Active Substance: HYDROXYCHLOROQUINE SULFATE
     Indication: SYSTEMIC LUPUS ERYTHEMATOSUS
     Dosage: 200 MG, 1D
     Dates: start: 20180608
  3. BENLYSTA [Suspect]
     Active Substance: BELIMUMAB
     Indication: SYSTEMIC LUPUS ERYTHEMATOSUS
     Dosage: 200 MG, WE
     Route: 058
     Dates: start: 20181214, end: 20190205
  4. PREDNISOLONE. [Concomitant]
     Active Substance: PREDNISOLONE
     Dosage: 7.5 MG, 1D
     Dates: start: 20190111
  5. PREDNISOLONE. [Concomitant]
     Active Substance: PREDNISOLONE
     Indication: SYSTEMIC LUPUS ERYTHEMATOSUS
     Dosage: 8 MG, 1D
     Dates: start: 20181207, end: 20190110

REACTIONS (4)
  - Diarrhoea [Recovering/Resolving]
  - Vomiting [Recovering/Resolving]
  - Gastroenteritis [Recovered/Resolved]
  - Feeding disorder [Recovering/Resolving]

NARRATIVE: CASE EVENT DATE: 201902
